FAERS Safety Report 8477800-4 (Version None)
Quarter: 2012Q2

REPORT INFORMATION
  Report Type: 
  Country: None (occurrence: None)
  Receive Date: 20120629
  Receipt Date: 20120621
  Transmission Date: 20120825
  Serious: Yes (Hospitalization)
  Sender: FDA-Public Use
  Company Number: US-BAYER-2012-019474

PATIENT
  Age: 15 Year
  Sex: Female
  Weight: 52.154 kg

DRUGS (6)
  1. ASCORBIC ACID [Concomitant]
     Dosage: UNK
     Dates: start: 20060101
  2. LEXAPRO [Concomitant]
     Dosage: UNK
     Dates: start: 20080101
  3. COMPAZINE [Concomitant]
     Dosage: 10 MG, Q6 ( EVERY 6 HOURS)
     Route: 048
     Dates: start: 20081206
  4. SEROQUEL [Concomitant]
     Dosage: UNK
     Dates: start: 20080101
  5. YAZ [Suspect]
     Dosage: UNK
     Dates: start: 20070101, end: 20080101
  6. PREVACID [Concomitant]
     Dosage: 30 MG, DAILY
     Route: 048
     Dates: start: 20081206

REACTIONS (3)
  - CHOLECYSTECTOMY [None]
  - PAIN [None]
  - BILIARY DYSKINESIA [None]
